FAERS Safety Report 6328559-8 (Version None)
Quarter: 2009Q3

REPORT INFORMATION
  Report Type: 
  Country: None (occurrence: None)
  Receive Date: 20090824
  Receipt Date: 20090824
  Transmission Date: 20100115
  Serious: No
  Sender: FDA-Public Use
  Company Number: None

PATIENT
  Sex: Male
  Weight: 113.9 kg

DRUGS (1)
  1. TAXOTERE [Suspect]
     Dosage: 176 MG

REACTIONS (1)
  - NEUTROPENIA [None]
